FAERS Safety Report 8249455-5 (Version None)
Quarter: 2012Q1

REPORT INFORMATION
  Report Type: 
  Country: None (occurrence: None)
  Receive Date: 20120316
  Receipt Date: 20100614
  Transmission Date: 20120608
  Serious: Yes (Other)
  Sender: FDA-Public Use
  Company Number: PHHY2010US32604

PATIENT
  Age: 63 Year
  Sex: Male

DRUGS (3)
  1. ACE INHIBITOR NOS (NO INGREDIDENT/SUBSTANCES) [Concomitant]
  2. TEKTURNA [Suspect]
     Indication: HYPERTENSION
     Dosage: 1 DF, QD, ORAL
     Route: 048
  3. METOPROLOL SUCCINATE [Concomitant]

REACTIONS (1)
  - BLOOD POTASSIUM INCREASED [None]
